FAERS Safety Report 5406349-8 (Version None)
Quarter: 2007Q3

REPORT INFORMATION
  Report Type: 
  Country: None (occurrence: None)
  Receive Date: 20070806
  Receipt Date: 20070724
  Transmission Date: 20080115
  Serious: Yes (Other)
  Sender: FDA-Public Use
  Company Number: US-SANOFI-SYNTHELABO-A03200704872

PATIENT
  Age: 68 Year
  Sex: Female

DRUGS (7)
  1. VELCADE [Concomitant]
     Dosage: UNK
     Route: 065
  2. XANAX [Concomitant]
     Dosage: UNK
     Route: 065
  3. LEXAPRO [Concomitant]
     Dosage: UNK
     Route: 065
  4. ATENOLOL [Concomitant]
     Dosage: UNK
     Route: 065
  5. HYDROCHLOROTHIAZIDE [Concomitant]
     Dosage: UNK
     Route: 065
  6. AMBIEN [Suspect]
     Indication: INSOMNIA
     Route: 048
     Dates: start: 20070401, end: 20070101
  7. PERCOCET [Concomitant]
     Dosage: UNK
     Route: 065

REACTIONS (8)
  - ABNORMAL BEHAVIOUR [None]
  - AMNESIA [None]
  - CONTUSION [None]
  - EATING DISORDER [None]
  - FALL [None]
  - ROAD TRAFFIC ACCIDENT [None]
  - SOMNAMBULISM [None]
  - THERAPY REGIMEN CHANGED [None]
